FAERS Safety Report 18263264 (Version 1)
Quarter: 2020Q3

REPORT INFORMATION
  Report Type: Report from Study
  Country: GB (occurrence: GB)
  Receive Date: 20200914
  Receipt Date: 20200914
  Transmission Date: 20201103
  Serious: Yes (Hospitalization)
  Sender: FDA-Public Use
  Company Number: GB-IPSEN BIOPHARMACEUTICALS, INC.-2020-06134

PATIENT
  Age: 88 Year
  Sex: Female

DRUGS (1)
  1. SOMATULINE AUTOGEL [Suspect]
     Active Substance: LANREOTIDE ACETATE
     Indication: ACROMEGALY
     Dosage: 120 MG/0.5 ML
     Route: 058

REACTIONS (7)
  - Colitis [Unknown]
  - Malaise [Unknown]
  - Dizziness [Unknown]
  - Weight decreased [Unknown]
  - Fatigue [Unknown]
  - Blood calcium increased [Recovered/Resolved]
  - Fall [Recovered/Resolved]

NARRATIVE: CASE EVENT DATE: 2020
